FAERS Safety Report 19143146 (Version 1)
Quarter: 2021Q2

REPORT INFORMATION
  Report Type: Spontaneous
  Country: US (occurrence: US)
  Receive Date: 20210415
  Receipt Date: 20210415
  Transmission Date: 20210717
  Serious: No
  Sender: FDA-Public Use
  Company Number: US-TERSERA THERAPEUTICS LLC-2020TRS004398

PATIENT

DRUGS (1)
  1. XERMELO [Suspect]
     Active Substance: TELOTRISTAT ETHYL
     Indication: CARCINOID TUMOUR OF THE GASTROINTESTINAL TRACT
     Dosage: 250 MG, BID (1 TABLET BY MOUTH 1?2 TIMES PER DAY WITH MEAL/FOOD) (BASED ON CONSTIPATION SYMPTOMS)
     Route: 048
     Dates: start: 20200206

REACTIONS (2)
  - Gastrointestinal disorder [Unknown]
  - Inappropriate schedule of product administration [Unknown]

NARRATIVE: CASE EVENT DATE: 20200206
